FAERS Safety Report 16456521 (Version 3)
Quarter: 2019Q3

REPORT INFORMATION
  Report Type: Report from Study
  Country: CH (occurrence: CH)
  Receive Date: 20190620
  Receipt Date: 20190730
  Transmission Date: 20191004
  Serious: Yes (Other)
  Sender: FDA-Public Use
  Company Number: CH-GILEAD-2019-0414418

PATIENT
  Age: 59 Year
  Sex: Male

DRUGS (1)
  1. SOFOSBUVIR W/VELPATASVIR [Suspect]
     Active Substance: SOFOSBUVIR\VELPATASVIR
     Indication: CHRONIC HEPATITIS C
     Dosage: UNK
     Route: 065
     Dates: start: 201803, end: 201805

REACTIONS (3)
  - Hepatitis C [Not Recovered/Not Resolved]
  - Genotype drug resistance test positive [Unknown]
  - Treatment failure [Not Recovered/Not Resolved]
